FAERS Safety Report 7379359-1 (Version None)
Quarter: 2011Q1

REPORT INFORMATION
  Report Type: 
  Country: None (occurrence: None)
  Receive Date: 20110329
  Receipt Date: 20110315
  Transmission Date: 20110831
  Serious: No
  Sender: FDA-Public Use
  Company Number: US-BIOGENIDEC-2011BI009903

PATIENT
  Age: 55 Year
  Sex: Female

DRUGS (2)
  1. DICLOFENAC SODIUM [Concomitant]
     Indication: FACIAL NEURALGIA
  2. TYSABRI [Suspect]
     Indication: MULTIPLE SCLEROSIS
     Route: 042
     Dates: start: 20110303

REACTIONS (3)
  - ARTHRALGIA [None]
  - HYPERAESTHESIA [None]
  - FACIAL NEURALGIA [None]
